FAERS Safety Report 6310232-3 (Version None)
Quarter: 2009Q3

REPORT INFORMATION
  Report Type: 
  Country: None (occurrence: None)
  Receive Date: 20090811
  Receipt Date: 20090728
  Transmission Date: 20100115
  Serious: Yes (Hospitalization)
  Sender: FDA-Public Use
  Company Number: KV200800178

PATIENT
  Age: 47 Year
  Sex: Male
  Weight: 70.3 kg

DRUGS (4)
  1. MORPHINE SULFATE [Suspect]
     Indication: ARTHRITIS
     Dosage: 60 MG, TID, ORAL
     Route: 048
     Dates: start: 20080601
  2. DILANTIN [Concomitant]
  3. DEPAKOTE [Concomitant]
  4. VALIUM [Concomitant]

REACTIONS (7)
  - ACTIVITIES OF DAILY LIVING IMPAIRED [None]
  - DYSARTHRIA [None]
  - FALL [None]
  - GRAND MAL CONVULSION [None]
  - HIP FRACTURE [None]
  - OVERDOSE [None]
  - PRODUCT QUALITY ISSUE [None]
